FAERS Safety Report 7727759-X (Version None)
Quarter: 2011Q3

REPORT INFORMATION
  Report Type: 
  Country: None (occurrence: None)
  Receive Date: 20110902
  Receipt Date: 20110824
  Transmission Date: 20111222
  Serious: Yes (Hospitalization)
  Sender: FDA-Public Use
  Company Number: US-RB-028068-11

PATIENT
  Sex: Female

DRUGS (1)
  1. SUBUTEX [Suspect]
     Indication: PRODUCT USED FOR UNKNOWN INDICATION
     Dosage: DOSING INFORMATION UNKNOWN
     Route: 064
     Dates: start: 20100101, end: 20110519

REACTIONS (3)
  - MATERNAL EXPOSURE DURING PREGNANCY [None]
  - NEONATAL ASPIRATION [None]
  - DRUG WITHDRAWAL SYNDROME NEONATAL [None]
